FAERS Safety Report 7861122-6 (Version None)
Quarter: 2011Q4

REPORT INFORMATION
  Report Type: 
  Country: None (occurrence: None)
  Receive Date: 20111027
  Receipt Date: 20111013
  Transmission Date: 20120403
  Serious: Yes (Hospitalization, Other)
  Sender: FDA-Public Use
  Company Number: BR-MEDIMMUNE-MEDI-0012175

PATIENT
  Sex: Female
  Weight: 6.6 kg

DRUGS (4)
  1. FERROGLYCINATE CHELATE [Concomitant]
     Indication: VITAMIN SUPPLEMENTATION
     Route: 048
     Dates: start: 20091121
  2. SYNAGIS [Suspect]
     Indication: BRONCHOPULMONARY DYSPLASIA
     Route: 030
     Dates: start: 20100501, end: 20100101
  3. SYNAGIS [Suspect]
     Route: 030
     Dates: start: 20110101, end: 20110101
  4. PROTOVIT [Concomitant]
     Indication: VITAMIN SUPPLEMENTATION
     Route: 048
     Dates: start: 20091121

REACTIONS (13)
  - COUGH [None]
  - RESPIRATORY DISORDER [None]
  - WHEEZING [None]
  - FATIGUE [None]
  - DECREASED APPETITE [None]
  - LOWER RESPIRATORY TRACT INFECTION [None]
  - VOMITING [None]
  - LOWER RESPIRATORY TRACT INFLAMMATION [None]
  - DRUG INEFFECTIVE [None]
  - SECRETION DISCHARGE [None]
  - ESCHERICHIA INFECTION [None]
  - IMMUNODEFICIENCY [None]
  - INFLUENZA [None]
